FAERS Safety Report 8351454-X (Version None)
Quarter: 2012Q2

REPORT INFORMATION
  Report Type: 
  Country: None (occurrence: None)
  Receive Date: 20120510
  Receipt Date: 20120501
  Transmission Date: 20120825
  Serious: Yes (Other)
  Sender: FDA-Public Use
  Company Number: CA-ROCHE-1015228

PATIENT
  Sex: Male

DRUGS (3)
  1. XOLAIR [Suspect]
     Indication: ASTHMA
     Route: 058
     Dates: start: 20100929
  2. XOLAIR [Suspect]
     Dates: start: 20120320
  3. XOLAIR [Suspect]
     Dates: start: 20111115

REACTIONS (4)
  - INJECTION SITE DISCOMFORT [None]
  - HYPERTENSION [None]
  - HEART RATE INCREASED [None]
  - LIMB DISCOMFORT [None]
